FAERS Safety Report 7368655-X (Version None)
Quarter: 2011Q1

REPORT INFORMATION
  Report Type: 
  Country: None (occurrence: None)
  Receive Date: 20110323
  Receipt Date: 20110314
  Transmission Date: 20110831
  Serious: Yes (Hospitalization)
  Sender: FDA-Public Use
  Company Number: FR-BRISTOL-MYERS SQUIBB COMPANY-15610975

PATIENT
  Age: 68 Year
  Sex: Male

DRUGS (17)
  1. CYMBALTA [Concomitant]
     Route: 048
  2. HEMIGOXINE NATIVELLE [Concomitant]
     Route: 048
  3. ACTISKENAN [Concomitant]
     Route: 048
  4. TEMERIT [Concomitant]
     Dosage: TEMERIT 5MG 1 DF:0.5 UNIT NOS
     Route: 048
  5. NEXIUM [Concomitant]
     Route: 048
  6. VITAMIN B6 [Concomitant]
     Route: 048
  7. PREVISCAN [Concomitant]
     Route: 048
  8. VITAMIN B1 TAB [Concomitant]
     Route: 048
  9. CALCIDOSE [Concomitant]
     Route: 048
  10. LEVOTHYROXINE [Concomitant]
     Route: 048
  11. CISPLATIN [Suspect]
     Indication: LUNG SQUAMOUS CELL CARCINOMA STAGE UNSPECIFIED
     Route: 042
     Dates: start: 20100105, end: 20100512
  12. LYRICA [Concomitant]
     Route: 048
  13. VITAMIN D [Concomitant]
     Route: 048
  14. LASIX [Concomitant]
     Route: 048
  15. DUPHALAC [Concomitant]
     Route: 048
  16. TAXOL [Suspect]
     Indication: LUNG SQUAMOUS CELL CARCINOMA STAGE UNSPECIFIED
     Route: 042
     Dates: start: 20100105, end: 20100512
  17. SKENAN [Concomitant]
     Dosage: SKENAN LP
     Route: 048

REACTIONS (2)
  - TOXIC NEUROPATHY [None]
  - PARAPLEGIA [None]
